FAERS Safety Report 7027042-4 (Version None)
Quarter: 2010Q4

REPORT INFORMATION
  Report Type: 
  Country: None (occurrence: None)
  Receive Date: 20101004
  Receipt Date: 20100923
  Transmission Date: 20110411
  Serious: Yes (Hospitalization, Other)
  Sender: FDA-Public Use
  Company Number: BR-ELI_LILLY_AND_COMPANY-BR201009006632

PATIENT
  Sex: Female
  Weight: 80 kg

DRUGS (4)
  1. HUMALOG MIX 50/50 [Suspect]
     Indication: TYPE 2 DIABETES MELLITUS
     Dosage: UNK, UNKNOWN
     Route: 065
  2. GALVUS MET [Concomitant]
     Dosage: UNK, UNKNOWN
     Route: 065
  3. TAMOXIFEN CITRATE [Concomitant]
     Dosage: UNK, UNKNOWN
     Route: 065
  4. DIAMICRON [Concomitant]
     Dosage: UNK, UNKNOWN
     Route: 065

REACTIONS (1)
  - THYROID NEOPLASM [None]
